FAERS Safety Report 6958993-4 (Version None)
Quarter: 2010Q3

REPORT INFORMATION
  Report Type: 
  Country: None (occurrence: None)
  Receive Date: 20100831
  Receipt Date: 20100819
  Transmission Date: 20110219
  Serious: Yes (Hospitalization)
  Sender: FDA-Public Use
  Company Number: FR-PFIZER INC-2010104356

PATIENT
  Age: 82 Year
  Sex: Female

DRUGS (7)
  1. ZYVOX [Suspect]
     Dosage: UNK
     Route: 042
     Dates: start: 20100722, end: 20100729
  2. RIFADIN [Suspect]
     Dosage: 600 MG, 2X/DAY
     Route: 042
     Dates: start: 20100724, end: 20100726
  3. CEFTAZIDIME [Suspect]
     Dosage: UNK
     Route: 042
     Dates: start: 20100712, end: 20100728
  4. TRIFLUCAN [Concomitant]
     Dosage: UNK
  5. TAHOR [Concomitant]
     Dosage: UNK
  6. PIPERACILLIN AND TAZOBACTAM [Concomitant]
  7. LANSOPRAZOLE [Concomitant]
     Dosage: UNK

REACTIONS (2)
  - FACE OEDEMA [None]
  - RASH MACULO-PAPULAR [None]
